FAERS Safety Report 7384048-3 (Version None)
Quarter: 2011Q1

REPORT INFORMATION
  Report Type: 
  Country: None (occurrence: None)
  Receive Date: 20110330
  Receipt Date: 20110325
  Transmission Date: 20110831
  Serious: Yes (Hospitalization)
  Sender: FDA-Public Use
  Company Number: GXKR2011DE01300

PATIENT
  Age: 84 Year
  Sex: Female

DRUGS (5)
  1. NITROGLYCERIN [Suspect]
     Indication: HYPERTENSION
     Dosage: 1 DF, UNK
     Route: 060
  2. BISOPROLOL FUMARATE [Suspect]
     Indication: HYPERTENSION
     Dosage: 7.5 MG, UNK
     Route: 048
  3. VALSARTAN/HYDROCHLOROTHIAZIDE [Suspect]
     Indication: HYPERTENSION
     Dosage: 80/12.5 MG DAILY
     Route: 048
  4. ACETYLSALICYLIC ACID [Concomitant]
     Indication: ARTERIOSCLEROSIS CORONARY ARTERY
     Dosage: 100 MG, QD
     Route: 048
     Dates: start: 20060101
  5. GLIBENCLAMIDE [Concomitant]
     Indication: TYPE 2 DIABETES MELLITUS
     Dosage: 3.5 MG, BID
     Route: 048

REACTIONS (1)
  - SYNCOPE [None]
